FAERS Safety Report 11660900 (Version 3)
Quarter: 2015Q4

REPORT INFORMATION
  Report Type: Spontaneous
  Country: JP (occurrence: JP)
  Receive Date: 20151026
  Receipt Date: 20151119
  Transmission Date: 20160304
  Serious: Yes (Death)
  Sender: FDA-Public Use
  Company Number: JP-ELI_LILLY_AND_COMPANY-JP201510007412

PATIENT
  Age: 75 Year
  Sex: Female
  Weight: 36 kg

DRUGS (2)
  1. CYRAMZA [Suspect]
     Active Substance: RAMUCIRUMAB
     Indication: GASTRIC CANCER
     Dosage: 300 MG, OTHER
     Route: 042
     Dates: start: 20151013, end: 20151013
  2. NIFLEC [Concomitant]
     Active Substance: BICARBONATE ION\POLYETHYLENE GLYCOLS\POTASSIUM CATION\SODIUM CHLORIDE\SODIUM SULFATE ANHYDROUS
     Dosage: UNK
     Route: 048
     Dates: start: 20151016, end: 20151016

REACTIONS (3)
  - Melaena [Recovered/Resolved]
  - Vomiting [Unknown]
  - Pneumonia [Fatal]

NARRATIVE: CASE EVENT DATE: 20151015
